FAERS Safety Report 14591254 (Version 2)
Quarter: 2018Q1

REPORT INFORMATION
  Report Type: Report from Study
  Country: FR (occurrence: FR)
  Receive Date: 20180302
  Receipt Date: 20180309
  Transmission Date: 20180509
  Serious: Yes (Death, Life-Threatening)
  Sender: FDA-Public Use
  Company Number: FR-PFIZER INC-FRWYE380306APR07

PATIENT
  Age: 49 Year
  Sex: Male

DRUGS (13)
  1. VANCOMYCIN HCL [Suspect]
     Active Substance: VANCOMYCIN HYDROCHLORIDE
     Dosage: 2.5 G, DAILY
     Route: 042
     Dates: start: 20070210, end: 20070223
  2. INIPOMP [Concomitant]
     Active Substance: PANTOPRAZOLE SODIUM
     Route: 065
  3. ZOPHREN /00955302/ [Concomitant]
     Active Substance: ONDANSETRON
     Route: 065
  4. ACICLOVIR [Suspect]
     Active Substance: ACYCLOVIR
     Dosage: 250 MG, DAILY
     Route: 042
     Dates: start: 20070207, end: 20070220
  5. GEMTUZUMAB OZOGAMICIN [Suspect]
     Active Substance: GEMTUZUMAB OZOGAMICIN
     Indication: ACUTE MYELOID LEUKAEMIA
     Dosage: UNK
     Route: 042
     Dates: start: 20070206, end: 20070206
  6. FLUDARABINE PHOSPHATE. [Suspect]
     Active Substance: FLUDARABINE PHOSPHATE
     Indication: ACUTE MYELOID LEUKAEMIA
     Dosage: UNK
     Route: 042
     Dates: start: 20070206, end: 20070210
  7. GENTAMICIN. [Concomitant]
     Active Substance: GENTAMICIN
     Route: 065
  8. FUROSEMIDE. [Concomitant]
     Active Substance: FUROSEMIDE
     Route: 065
  9. CONTRAMAL [Concomitant]
     Active Substance: TRAMADOL HYDROCHLORIDE
     Route: 065
  10. CYTARABINE. [Suspect]
     Active Substance: CYTARABINE
     Indication: ACUTE MYELOID LEUKAEMIA
     Dosage: UNK
     Route: 042
     Dates: start: 20070206, end: 20070210
  11. CIFLOX /00697201/ [Concomitant]
     Active Substance: CIPROFLOXACIN
     Route: 065
  12. PERFALGAN [Concomitant]
     Active Substance: ACETAMINOPHEN
     Route: 065
  13. IDARUBICIN HCL [Suspect]
     Active Substance: IDARUBICIN HYDROCHLORIDE
     Indication: ACUTE MYELOID LEUKAEMIA
     Dosage: UNK
     Route: 065
     Dates: start: 20070208, end: 20070209

REACTIONS (3)
  - Venoocclusive liver disease [Fatal]
  - Neoplasm progression [Fatal]
  - Multiple organ dysfunction syndrome [Fatal]

NARRATIVE: CASE EVENT DATE: 20070219
